FAERS Safety Report 5600033-3 (Version None)
Quarter: 2008Q1

REPORT INFORMATION
  Report Type: 
  Country: None (occurrence: None)
  Receive Date: 20080123
  Receipt Date: 20080117
  Transmission Date: 20080703
  Serious: Yes (Life-Threatening, Other)
  Sender: FDA-Public Use
  Company Number: NL-ASTRAZENECA-2008AC00228

PATIENT
  Age: 67 Year
  Sex: Male

DRUGS (1)
  1. LIDOCAINE [Suspect]
     Indication: LOCAL ANAESTHESIA
     Route: 014

REACTIONS (3)
  - CARDIO-RESPIRATORY ARREST [None]
  - EPILEPSY [None]
  - URTICARIA [None]
